FAERS Safety Report 15257815 (Version 1)
Quarter: 2018Q3

REPORT INFORMATION
  Report Type: Spontaneous
  Country: US (occurrence: US)
  Receive Date: 20180718
  Receipt Date: 20180718
  Transmission Date: 20181010
  Serious: Yes (Hospitalization, Disabling, Other)
  Sender: FDA-Public Use
  Company Number: None

PATIENT
  Age: 24 Year
  Sex: Female
  Weight: 72 kg

DRUGS (7)
  1. GABAPENTIN. [Concomitant]
     Active Substance: GABAPENTIN
  2. LAMECTOL [Concomitant]
  3. OCELLA BIRTH CONTROL [Concomitant]
  4. CIPROFLAXIN [Suspect]
     Active Substance: CIPROFLOXACIN
     Indication: URINARY TRACT INFECTION
     Route: 048
     Dates: start: 20130630, end: 20180701
  5. CIPROFLAXIN [Suspect]
     Active Substance: CIPROFLOXACIN
     Indication: SINUSITIS
     Route: 048
     Dates: start: 20130630, end: 20180701
  6. IBUPROFEN. [Concomitant]
     Active Substance: IBUPROFEN
  7. TYLENOL [Concomitant]
     Active Substance: ACETAMINOPHEN

REACTIONS (6)
  - Neuralgia [None]
  - Muscle spasms [None]
  - Nervous system disorder [None]
  - Tendon pain [None]
  - Paraesthesia [None]
  - Pain [None]

NARRATIVE: CASE EVENT DATE: 20180630
